FAERS Safety Report 23979500 (Version 1)
Quarter: 2024Q2

REPORT INFORMATION
  Report Type: Spontaneous
  Country: US (occurrence: US)
  Receive Date: 20240616
  Receipt Date: 20240616
  Transmission Date: 20240716
  Serious: Yes (Other)
  Sender: FDA-Public Use
  Company Number: US-JNJFOC-20240623433

PATIENT
  Sex: Female

DRUGS (2)
  1. BALVERSA [Suspect]
     Active Substance: ERDAFITINIB
     Indication: Product used for unknown indication
     Dosage: TAKEN 2 TABLETS BY MOUTH EVERY DAY
     Route: 048
  2. BALVERSA [Suspect]
     Active Substance: ERDAFITINIB
     Dosage: TAKEN 2 TABLETS BY MOUTH EVERY DAY
     Route: 048

REACTIONS (1)
  - Blindness [Unknown]
